FAERS Safety Report 17761189 (Version 1)
Quarter: 2020Q2

REPORT INFORMATION
  Report Type: Spontaneous
  Country: FR (occurrence: FR)
  Receive Date: 20200508
  Receipt Date: 20200508
  Transmission Date: 20200714
  Serious: Yes (Other)
  Sender: FDA-Public Use
  Company Number: FR-PFIZER INC-2020181727

PATIENT
  Age: 35 Year
  Sex: Male

DRUGS (4)
  1. DAPTOMYCIN. [Suspect]
     Active Substance: DAPTOMYCIN
     Indication: BONE MARROW FAILURE
     Dosage: 700 MG, 1X/DAY
     Route: 041
     Dates: start: 20200312, end: 20200330
  2. TAZOCILLINE [Suspect]
     Active Substance: PIPERACILLIN SODIUM\TAZOBACTAM SODIUM
     Indication: BONE MARROW FAILURE
     Dosage: 16 G, 1X/DAY
     Route: 041
     Dates: start: 20200315, end: 20200330
  3. TOPALGIC [TRAMADOL HYDROCHLORIDE] [Suspect]
     Active Substance: TRAMADOL HYDROCHLORIDE
     Indication: PAIN
     Dosage: 400 MG, 1X/DAY
     Route: 041
     Dates: start: 20200314
  4. PARACETAMOL B BRAUN [Suspect]
     Active Substance: ACETAMINOPHEN
     Indication: PAIN
     Dosage: 4 G, 1X/DAY
     Route: 041
     Dates: start: 20200314

REACTIONS (4)
  - Off label use [Unknown]
  - Toxic skin eruption [Recovering/Resolving]
  - Product use in unapproved indication [Unknown]
  - Rash maculo-papular [Recovering/Resolving]

NARRATIVE: CASE EVENT DATE: 20200315
